FAERS Safety Report 9028627 (Version 1)
Quarter: 2013Q1

REPORT INFORMATION
  Report Type: Spontaneous
  Country: US (occurrence: US)
  Receive Date: 20130124
  Receipt Date: 20130124
  Transmission Date: 20140127
  Serious: No
  Sender: FDA-Public Use
  Company Number: US-B.I. PHARMACEUTICALS,INC./RIDGEFIELD-2013-BI-01526BP

PATIENT
  Age: 61 None
  Sex: Female

DRUGS (2)
  1. MIRAPEX [Suspect]
     Indication: RESTLESS LEGS SYNDROME
     Route: 048
     Dates: start: 2006, end: 201210
  2. MIRAPEX [Suspect]
     Dosage: 0.5 MG
     Route: 048
     Dates: start: 201210, end: 20121228

REACTIONS (3)
  - Initial insomnia [Not Recovered/Not Resolved]
  - Mental disorder [Not Recovered/Not Resolved]
  - Overdose [Recovered/Resolved]
